FAERS Safety Report 10461941 (Version 1)
Quarter: 2014Q3

REPORT INFORMATION
  Report Type: Spontaneous
  Country: US (occurrence: None)
  Receive Date: 20140916
  Receipt Date: 20140916
  Transmission Date: 20150326
  Serious: No
  Sender: FDA-Public Use
  Company Number: 14AE039

PATIENT
  Sex: Female

DRUGS (2)
  1. DOXYLAMINE SUCCINATE [Suspect]
     Active Substance: DOXYLAMINE SUCCINATE
     Indication: SLEEP DISORDER
     Route: 048
     Dates: start: 20140827
  2. ALBUTEROL (INHALER) [Concomitant]

REACTIONS (2)
  - Faeces discoloured [None]
  - Tremor [None]

NARRATIVE: CASE EVENT DATE: 20140827
